FAERS Safety Report 7319446-7 (Version None)
Quarter: 2011Q1

REPORT INFORMATION
  Report Type: 
  Country: None (occurrence: None)
  Receive Date: 20110228
  Receipt Date: 20100610
  Transmission Date: 20110831
  Serious: No
  Sender: FDA-Public Use
  Company Number: A0852226A

PATIENT
  Age: 27 Year
  Sex: Female
  Weight: 53.6 kg

DRUGS (3)
  1. CYMBALTA [Concomitant]
  2. LAMICTAL [Suspect]
     Dosage: 200MG PER DAY
     Route: 048
  3. KLONOPIN [Concomitant]

REACTIONS (2)
  - LIVE BIRTH [None]
  - DRUG EXPOSURE DURING PREGNANCY [None]
